FAERS Safety Report 7150175-9 (Version None)
Quarter: 2010Q4

REPORT INFORMATION
  Report Type: 
  Country: None (occurrence: None)
  Receive Date: 20101210
  Receipt Date: 20101201
  Transmission Date: 20110411
  Serious: Yes (Other)
  Sender: FDA-Public Use
  Company Number: FR-BRISTOL-MYERS SQUIBB COMPANY-15415623

PATIENT
  Sex: Female

DRUGS (4)
  1. ONGLYZA [Suspect]
     Dates: start: 20100929, end: 20101201
  2. GLYBURIDE [Concomitant]
  3. INIPOMP [Concomitant]
  4. LEVOTHYROX [Concomitant]

REACTIONS (1)
  - CYTOLYTIC HEPATITIS [None]
